FAERS Safety Report 5158460-7 (Version None)
Quarter: 2006Q4

REPORT INFORMATION
  Report Type: 
  Country: None (occurrence: None)
  Receive Date: 20061128
  Receipt Date: 19941122
  Transmission Date: 20070319
  Serious: Yes (Life-Threatening, Hospitalization)
  Sender: FDA-Public Use
  Company Number: NZ/94/00423/LAS

PATIENT
  Age: 39 Year
  Sex: Male

DRUGS (2)
  1. LAMISIL [Suspect]
     Indication: ONYCHOMYCOSIS
     Dosage: 250 MG/D
     Route: 048
     Dates: start: 19940929, end: 19941108
  2. GENTAMICIN [Concomitant]
     Dosage: UNSPECIFIED
     Route: 042

REACTIONS (3)
  - AGRANULOCYTOSIS [None]
  - NEUTROPENIA [None]
  - SEPSIS [None]
